FAERS Safety Report 11455317 (Version 1)
Quarter: 2015Q3

REPORT INFORMATION
  Report Type: Spontaneous
  Country: US (occurrence: US)
  Receive Date: 20150903
  Receipt Date: 20150903
  Transmission Date: 20151125
  Serious: No
  Sender: FDA-Public Use
  Company Number: US-BAYER-2015-407198

PATIENT
  Age: 80 Year
  Sex: Female
  Weight: 56.69 kg

DRUGS (4)
  1. STOOL SOFTENER [Concomitant]
     Active Substance: DOCUSATE CALCIUM
     Indication: CONSTIPATION
  2. GLYCERIN SUPPOSITORIES [Concomitant]
     Indication: CONSTIPATION
  3. MILK OF MAGNESIA ORIGINAL [Suspect]
     Active Substance: MAGNESIUM HYDROXIDE
  4. MIRALAX [Suspect]
     Active Substance: POLYETHYLENE GLYCOL 3350
     Indication: CONSTIPATION
     Dosage: 1 DF (DOSE), QD
     Route: 048
     Dates: start: 2014

REACTIONS (3)
  - Drug effect incomplete [Not Recovered/Not Resolved]
  - Drug ineffective [Unknown]
  - Product use issue [None]

NARRATIVE: CASE EVENT DATE: 2014
